FAERS Safety Report 23149357 (Version 7)
Quarter: 2024Q1

REPORT INFORMATION
  Report Type: Spontaneous
  Country: PT (occurrence: PT)
  Receive Date: 20231106
  Receipt Date: 20240308
  Transmission Date: 20240409
  Serious: Yes (Death, Other)
  Sender: FDA-Public Use
  Company Number: PT-GLAXOSMITHKLINE-PT2022017931

PATIENT

DRUGS (81)
  1. DUTASTERIDE [Suspect]
     Active Substance: DUTASTERIDE
     Dosage: 100 MG
     Route: 065
  2. LEVOCETIRIZINE DIHYDROCHLORIDE [Suspect]
     Active Substance: LEVOCETIRIZINE DIHYDROCHLORIDE
     Dosage: 5 MG
     Route: 065
  3. ASPIRIN [Suspect]
     Active Substance: ASPIRIN
     Dosage: 100 MG
     Route: 065
  4. DILTIAZEM HYDROCHLORIDE [Suspect]
     Active Substance: DILTIAZEM HYDROCHLORIDE
     Dosage: 120 MG
     Route: 065
  5. NITROGLYCERIN [Suspect]
     Active Substance: NITROGLYCERIN
     Route: 065
  6. DOCETAXEL [Suspect]
     Active Substance: DOCETAXEL\DOCETAXEL ANHYDROUS
     Dosage: 100 MG
     Route: 065
  7. ADALIMUMAB [Suspect]
     Active Substance: ADALIMUMAB\ISOPROPYL ALCOHOL
     Dosage: 35 G
     Route: 065
  8. BISOPROLOL FUMARATE [Suspect]
     Active Substance: BISOPROLOL FUMARATE
     Dosage: 2.5 MG
     Route: 065
  9. BISOPROLOL [Suspect]
     Active Substance: BISOPROLOL\BISOPROLOL FUMARATE
     Dosage: 2.5 MG
     Route: 065
  10. VORTIOXETINE [Suspect]
     Active Substance: VORTIOXETINE
     Route: 065
  11. DOMPERIDONE MALEATE [Suspect]
     Active Substance: DOMPERIDONE MALEATE
     Route: 065
  12. ESCHERICHIA COLI [Suspect]
     Active Substance: ESCHERICHIA COLI
     Route: 065
  13. PENTAZOCINE [Suspect]
     Active Substance: PENTAZOCINE
     Dosage: 100 MG
     Route: 065
  14. ESOMEPRAZOLE [Suspect]
     Active Substance: ESOMEPRAZOLE
     Route: 065
  15. BUPRENORPHINE [Suspect]
     Active Substance: BUPRENORPHINE
     Dosage: 35 GM, QH
     Route: 062
  16. PRAVASTATIN [Suspect]
     Active Substance: PRAVASTATIN
     Route: 065
  17. IODINE [Suspect]
     Active Substance: IODINE
     Route: 065
  18. ZOLEDRONIC ACID [Suspect]
     Active Substance: ZOLEDRONIC ACID
     Route: 065
  19. POTASSIUM IODIDE [Suspect]
     Active Substance: POTASSIUM IODIDE
     Route: 065
  20. VERAPAMIL HYDROCHLORIDE [Suspect]
     Active Substance: VERAPAMIL HYDROCHLORIDE
     Dosage: 120 MG
     Route: 065
  21. EXEMESTANE [Suspect]
     Active Substance: EXEMESTANE
     Dosage: 35 G
     Route: 065
  22. CELECOXIB [Suspect]
     Active Substance: CELECOXIB
     Dosage: 100 MG
     Route: 065
  23. INDOMETHACIN [Suspect]
     Active Substance: INDOMETHACIN
     Dosage: 100 MG
     Route: 065
  24. ESCITALOPRAM OXALATE [Suspect]
     Active Substance: ESCITALOPRAM OXALATE
     Route: 048
  25. LEDIPASVIR [Suspect]
     Active Substance: LEDIPASVIR
     Route: 065
  26. TOCILIZUMAB [Suspect]
     Active Substance: TOCILIZUMAB
     Route: 065
  27. ALISKIREN [Suspect]
     Active Substance: ALISKIREN
     Route: 065
  28. NORFLOXACIN [Suspect]
     Active Substance: NORFLOXACIN
     Route: 065
  29. FLUVASTATIN [Suspect]
     Active Substance: FLUVASTATIN SODIUM
     Route: 065
  30. CODEINE PHOSPHATE [Suspect]
     Active Substance: CODEINE PHOSPHATE
     Route: 065
  31. ENOXAPARIN SODIUM [Suspect]
     Active Substance: ENOXAPARIN SODIUM
     Route: 065
  32. DONEPEZIL [Suspect]
     Active Substance: DONEPEZIL
     Dosage: 5 MG
     Route: 048
  33. DONEPEZIL [Suspect]
     Active Substance: DONEPEZIL
     Dosage: 5 MG
     Route: 048
  34. FLUOXETINE [Suspect]
     Active Substance: FLUOXETINE HYDROCHLORIDE
     Route: 065
  35. TRAMADOL HYDROCHLORIDE [Suspect]
     Active Substance: TRAMADOL HYDROCHLORIDE
     Route: 065
  36. CHOLECALCIFEROL [Suspect]
     Active Substance: CHOLECALCIFEROL
     Dosage: 50 MG
     Route: 065
  37. PREGABALIN [Suspect]
     Active Substance: PREGABALIN
     Dosage: 50 MG
     Route: 065
  38. PITAVASTATIN [Suspect]
     Active Substance: PITAVASTATIN
     Route: 065
  39. EZETIMIBE [Suspect]
     Active Substance: EZETIMIBE
     Route: 048
  40. CODEINE SULFATE [Suspect]
     Active Substance: CODEINE SULFATE
     Route: 065
  41. HYDROMORPHONE HYDROCHLORIDE [Suspect]
     Active Substance: HYDROMORPHONE HYDROCHLORIDE
     Route: 048
  42. SERTRALINE [Suspect]
     Active Substance: SERTRALINE HYDROCHLORIDE
     Route: 065
  43. DOMPERIDONE MALEATE [Suspect]
     Active Substance: DOMPERIDONE MALEATE
     Route: 065
  44. GLUCOSAMINE [Suspect]
     Active Substance: GLUCOSAMINE
     Dosage: 1500 MG
     Route: 065
  45. MYCOPHENOLIC ACID [Suspect]
     Active Substance: MYCOPHENOLIC ACID
     Route: 065
  46. HUMAN IMMUNOGLOBULIN G [Suspect]
     Active Substance: HUMAN IMMUNOGLOBULIN G
     Dosage: 50 MG
     Route: 065
  47. ATORVASTATIN CALCIUM [Suspect]
     Active Substance: ATORVASTATIN CALCIUM
     Route: 065
  48. TAMSULOSIN HYDROCHLORIDE [Suspect]
     Active Substance: TAMSULOSIN HYDROCHLORIDE
     Route: 065
  49. NORFLOXACIN [Suspect]
     Active Substance: NORFLOXACIN
     Route: 065
  50. GINKGO [Suspect]
     Active Substance: GINKGO
     Dosage: 120 MG
     Route: 065
  51. IBANDRONIC ACID [Suspect]
     Active Substance: IBANDRONIC ACID
     Route: 065
  52. NIMESULIDE [Suspect]
     Active Substance: NIMESULIDE
     Route: 065
  53. VERAPAMIL [Suspect]
     Active Substance: VERAPAMIL HYDROCHLORIDE
     Dosage: 120 MG
     Route: 065
  54. TELMISARTAN [Suspect]
     Active Substance: TELMISARTAN
     Route: 065
  55. NILOTINIB [Suspect]
     Active Substance: NILOTINIB
     Route: 065
  56. ZOMETA [Suspect]
     Active Substance: ZOLEDRONIC ACID
     Route: 065
  57. IMATINIB [Suspect]
     Active Substance: IMATINIB
     Route: 065
  58. VENLAFAXINE HCL [Suspect]
     Active Substance: VENLAFAXINE HYDROCHLORIDE
     Dosage: 100 MG
     Route: 065
  59. ANASTROZOLE [Suspect]
     Active Substance: ANASTROZOLE
     Route: 065
  60. LETROZOLE [Suspect]
     Active Substance: LETROZOLE
     Route: 065
  61. SODIUM PICOSULFATE [Suspect]
     Active Substance: SODIUM PICOSULFATE
     Dosage: 35 G
     Route: 062
  62. ALENDRONIC ACID [Suspect]
     Active Substance: ALENDRONIC ACID
     Route: 065
  63. CODEINE [Suspect]
     Active Substance: CODEINE
     Route: 065
  64. NITROGLYCERIN [Suspect]
     Active Substance: NITROGLYCERIN
     Route: 065
  65. HUMAN RABIES VIRUS IMMUNE GLOBULIN [Suspect]
     Active Substance: HUMAN RABIES VIRUS IMMUNE GLOBULIN
     Route: 065
  66. PROPRANOLOL [Suspect]
     Active Substance: PROPRANOLOL HYDROCHLORIDE
     Route: 065
  67. AGOMELATINE [Suspect]
     Active Substance: AGOMELATINE
     Route: 065
  68. DOMPERIDONE [Suspect]
     Active Substance: DOMPERIDONE
     Route: 065
  69. RIBAVIRIN [Suspect]
     Active Substance: RIBAVIRIN
     Dosage: 5 MG
     Route: 065
  70. ESCITALOPRAM [Suspect]
     Active Substance: ESCITALOPRAM OXALATE
     Dosage: 5 MG
     Route: 065
  71. BRINZOLAMIDE [Suspect]
     Active Substance: BRINZOLAMIDE
     Dosage: 100 MG
     Route: 031
  72. CILAZAPRIL ANHYDROUS [Suspect]
     Active Substance: CILAZAPRIL ANHYDROUS
     Route: 065
  73. HYDROMORPHONE [Suspect]
     Active Substance: HYDROMORPHONE
     Route: 065
  74. FENOFIBRATE [Suspect]
     Active Substance: FENOFIBRATE
     Dosage: 100 MG
     Route: 065
  75. SIMVASTATIN [Suspect]
     Active Substance: SIMVASTATIN
     Route: 048
  76. ETANERCEPT [Suspect]
     Active Substance: ETANERCEPT
     Route: 065
  77. PENTOXIFYLLINE [Suspect]
     Active Substance: PENTOXIFYLLINE
     Dosage: 400 MG
     Route: 065
  78. ACETAMINOPHEN [Suspect]
     Active Substance: ACETAMINOPHEN
     Route: 065
  79. HYDROCHLOROTHIAZIDE [Suspect]
     Active Substance: HYDROCHLOROTHIAZIDE
     Route: 065
  80. SOFOSBUVIR [Suspect]
     Active Substance: SOFOSBUVIR
     Route: 065
  81. ACECLOFENAC [Suspect]
     Active Substance: ACECLOFENAC
     Dosage: 100 MG
     Route: 065

REACTIONS (44)
  - Tachycardia [Fatal]
  - Dizziness [Fatal]
  - Vomiting [Fatal]
  - Tinnitus [Fatal]
  - Cough [Fatal]
  - Diplopia [Fatal]
  - Malaise [Fatal]
  - Photophobia [Fatal]
  - Abdominal pain upper [Fatal]
  - Somnolence [Fatal]
  - Arthralgia [Fatal]
  - Dyspnoea [Fatal]
  - Fatigue [Fatal]
  - Nausea [Fatal]
  - Abdominal pain [Fatal]
  - Asthenia [Fatal]
  - Pyrexia [Fatal]
  - Haematuria [Fatal]
  - Pruritus [Fatal]
  - Insomnia [Fatal]
  - Syncope [Fatal]
  - Amaurosis fugax [Fatal]
  - Haemorrhagic stroke [Fatal]
  - Chills [Fatal]
  - Urinary tract disorder [Fatal]
  - Cardio-respiratory arrest [Fatal]
  - Vision blurred [Fatal]
  - Headache [Fatal]
  - Blindness [Fatal]
  - Presyncope [Fatal]
  - Altered state of consciousness [Fatal]
  - Myalgia [Fatal]
  - Eye pain [Fatal]
  - Diarrhoea [Fatal]
  - Ocular discomfort [Fatal]
  - Coma [Fatal]
  - Ascites [Fatal]
  - Sepsis [Fatal]
  - Head discomfort [Fatal]
  - Decreased appetite [Fatal]
  - Generalised oedema [Fatal]
  - Blood pressure increased [Fatal]
  - Fall [Fatal]
  - Haematemesis [Fatal]
